FAERS Safety Report 19297844 (Version 1)
Quarter: 2021Q2

REPORT INFORMATION
  Report Type: Spontaneous
  Country: US (occurrence: US)
  Receive Date: 20210524
  Receipt Date: 20210524
  Transmission Date: 20210717
  Serious: Yes (Hospitalization)
  Sender: FDA-Public Use
  Company Number: US-AMNEAL PHARMACEUTICALS-2021-AMRX-01825

PATIENT
  Age: 63 Year
  Sex: Male

DRUGS (2)
  1. EPTIFIBATIDE. [Suspect]
     Active Substance: EPTIFIBATIDE
     Indication: ANTIPLATELET THERAPY
     Dosage: DOUBLE BOULS
     Route: 040
  2. EPTIFIBATIDE. [Suspect]
     Active Substance: EPTIFIBATIDE
     Dosage: 18 HOURS INFUSION
     Route: 041

REACTIONS (2)
  - Thrombocytopenia [Recovering/Resolving]
  - Vascular stent thrombosis [Recovering/Resolving]
